FAERS Safety Report 4700588-7 (Version None)
Quarter: 2005Q2

REPORT INFORMATION
  Report Type: 
  Country: None (occurrence: None)
  Receive Date: 20050627
  Receipt Date: 20050615
  Transmission Date: 20051028
  Serious: Yes (Death, Other)
  Sender: FDA-Public Use
  Company Number: 2005-06-1077

PATIENT
  Age: 50 Year
  Sex: Male

DRUGS (1)
  1. INTERFERON ALFA INJECTABLE [Suspect]
     Indication: CHRONIC MYELOID LEUKAEMIA
     Dosage: 6X10^6U QD

REACTIONS (2)
  - BONE MARROW DEPRESSION [None]
  - THERAPY NON-RESPONDER [None]
